FAERS Safety Report 13815894 (Version 2)
Quarter: 2017Q4

REPORT INFORMATION
  Report Type: Report from Study
  Country: BR (occurrence: BR)
  Receive Date: 20170731
  Receipt Date: 20171018
  Transmission Date: 20180320
  Serious: Yes (Hospitalization)
  Sender: FDA-Public Use
  Company Number: PHHY2017BR111056

PATIENT
  Sex: Female
  Weight: 71 kg

DRUGS (2)
  1. CALCIUM [Concomitant]
     Active Substance: CALCIUM
     Indication: PRODUCT USED FOR UNKNOWN INDICATION
     Route: 065
  2. ACLASTA [Suspect]
     Active Substance: ZOLEDRONIC ACID
     Indication: OSTEOPOROSIS
     Dosage: 1 DF, Q12MO
     Route: 042

REACTIONS (15)
  - Dizziness [Unknown]
  - Rheumatic disorder [Unknown]
  - Nodule [Unknown]
  - Fall [Unknown]
  - Rib fracture [Unknown]
  - Grip strength decreased [Unknown]
  - Arthralgia [Unknown]
  - Rheumatoid nodule [Unknown]
  - Arthritis [Unknown]
  - Foot fracture [Unknown]
  - Malaise [Unknown]
  - Pain [Unknown]
  - Upper limb fracture [Unknown]
  - Hand fracture [Unknown]
  - Weight increased [Unknown]
